FAERS Safety Report 14145296 (Version 1)
Quarter: 2017Q4

REPORT INFORMATION
  Report Type: Spontaneous
  Country: JP (occurrence: JP)
  Receive Date: 20171031
  Receipt Date: 20171031
  Transmission Date: 20180321
  Serious: Yes (Death)
  Sender: FDA-Public Use
  Company Number: JP-ASTRAZENECA-2017SF10269

PATIENT
  Age: 81 Year
  Sex: Female
  Weight: 43 kg

DRUGS (3)
  1. NEXIUM [Suspect]
     Active Substance: ESOMEPRAZOLE MAGNESIUM
     Dosage: DOSE UNKNOWN
     Route: 048
  2. FUNGUARD [Suspect]
     Active Substance: MICAFUNGIN SODIUM
     Dosage: DOSE UNKNOWN
     Route: 065
  3. NEORAL [Concomitant]
     Active Substance: CYCLOSPORINE
     Dosage: DOSE UNKNOWN
     Route: 048
     Dates: start: 20170302

REACTIONS (2)
  - Drug eruption [Recovering/Resolving]
  - Malignant neoplasm progression [Fatal]

NARRATIVE: CASE EVENT DATE: 20170213
